FAERS Safety Report 6138364-3 (Version None)
Quarter: 2009Q1

REPORT INFORMATION
  Report Type: 
  Country: None (occurrence: None)
  Receive Date: 20090331
  Receipt Date: 20090316
  Transmission Date: 20090719
  Serious: Yes (Other)
  Sender: FDA-Public Use
  Company Number: NO-PFIZER INC-2009176587

PATIENT

DRUGS (25)
  1. DOXORUBICIN HCL [Suspect]
     Indication: EWING'S SARCOMA
     Dosage: 40 MG
     Route: 065
     Dates: start: 20081215, end: 20081217
  2. BLEOMYCIN SULFATE [Suspect]
     Indication: EWING'S SARCOMA
     Route: 065
  3. ETOPOSIDE [Suspect]
     Indication: EWING'S SARCOMA
     Dosage: 300 MG
     Route: 065
     Dates: start: 20081215, end: 20081217
  4. ETOPOSIDE [Suspect]
     Dosage: 300 MG
     Route: 065
     Dates: start: 20081217
  5. CISPLATIN [Suspect]
     Indication: EWING'S SARCOMA
     Route: 065
  6. VINCRISTINE [Suspect]
     Indication: EWING'S SARCOMA
     Dosage: 2 MG
     Route: 065
     Dates: start: 20081215, end: 20081215
  7. HOLOXAN [Suspect]
     Indication: EWING'S SARCOMA
     Dosage: 6200 MG
     Route: 065
     Dates: start: 20081126, end: 20081128
  8. HOLOXAN [Suspect]
     Dosage: 6000 MG
     Route: 065
     Dates: start: 20081215, end: 20081217
  9. HOLOXAN [Suspect]
     Dosage: 6000 MG
     Route: 065
     Dates: start: 20090105, end: 20090105
  10. HOLOXAN [Suspect]
     Dosage: 5900 MG
     Route: 065
     Dates: start: 20090106, end: 20090106
  11. HOLOXAN [Suspect]
     Dosage: 5900 MG
     Route: 065
     Dates: start: 20090107, end: 20090107
  12. HOLOXAN [Suspect]
     Dosage: 6000 MG
     Route: 065
     Dates: start: 20090126, end: 20090127
  13. MESNA [Suspect]
     Indication: EWING'S SARCOMA
     Dosage: 6000 MG
     Route: 065
     Dates: start: 20081215, end: 20081216
  14. MESNA [Suspect]
     Dosage: 6000 MG
     Route: 065
     Dates: start: 20081217, end: 20081217
  15. ZOPICLONE [Concomitant]
     Dosage: 10 MG X 1 ^VESP^
     Dates: start: 20081218, end: 20081218
  16. FRAGMIN [Concomitant]
     Dosage: 2500 IE X 1
     Route: 058
     Dates: start: 20081215, end: 20081219
  17. KETALAR [Concomitant]
     Dosage: 75 MG/24 HRS, ANALGESIC PUMP
     Route: 058
  18. EMEND [Concomitant]
     Dosage: 125 MG
     Dates: start: 20081215
  19. EMEND [Concomitant]
     Dosage: 80 MG
     Dates: start: 20081216, end: 20081217
  20. EMEND [Concomitant]
     Dosage: UNK
  21. ZOFRAN [Concomitant]
     Dosage: 8 MG X 2
     Dates: start: 20081215, end: 20081219
  22. MORPHINE HYDROCHLORIDE [Concomitant]
     Dosage: 50 MG/24 HRS
  23. DUPHALAC [Concomitant]
     Dosage: MIX 15 ML X 2
     Dates: start: 20081215, end: 20081219
  24. DEXAMETHASONE [Concomitant]
     Dosage: 8 MG X 2
     Dates: start: 20081215, end: 20081217
  25. PARACETAMOL [Concomitant]
     Dosage: 1000 MG X 4
     Dates: start: 20081215, end: 20081219

REACTIONS (1)
  - ENCEPHALOPATHY [None]
